FAERS Safety Report 21376527 (Version 2)
Quarter: 2023Q1

REPORT INFORMATION
  Report Type: Report from Study
  Country: DE (occurrence: DE)
  Receive Date: 20220926
  Receipt Date: 20230314
  Transmission Date: 20230418
  Serious: Yes (Other)
  Sender: FDA-Public Use
  Company Number: DE-AMGEN-DEUSL2022162994

PATIENT
  Age: 55 Year
  Sex: Female

DRUGS (5)
  1. ADALIMUMAB [Suspect]
     Active Substance: ADALIMUMAB
     Indication: Crohn^s disease
     Dosage: UNK, QWK
     Route: 065
     Dates: start: 20190213, end: 20220920
  2. ADALIMUMAB [Suspect]
     Active Substance: ADALIMUMAB
     Indication: Rheumatoid arthritis
     Dosage: UNK UNK, QWK
     Route: 065
     Dates: start: 20190213, end: 20220920
  3. CORTISONE [Concomitant]
     Active Substance: CORTISONE
     Indication: Product used for unknown indication
     Dosage: 7 MILLIGRAM
  4. CORTISONE [Concomitant]
     Active Substance: CORTISONE
     Dosage: REDUCES THE DOSE BELOW 7 MILLIGRAM (MG)
  5. METHOTREXATE [Concomitant]
     Active Substance: METHOTREXATE
     Dosage: UNK

REACTIONS (4)
  - Goitre [Unknown]
  - Thyroid cyst [Not Recovered/Not Resolved]
  - Hepatitis E [Unknown]
  - Arthropathy [Unknown]

NARRATIVE: CASE EVENT DATE: 20221001
